FAERS Safety Report 15757771 (Version 3)
Quarter: 2021Q1

REPORT INFORMATION
  Report Type: Other
  Country: IL (occurrence: IL)
  Receive Date: 20181225
  Receipt Date: 20210222
  Transmission Date: 20210419
  Serious: Yes (Other)
  Sender: FDA-Public Use
  Company Number: IL-ROCHE-2235241

PATIENT
  Sex: Female

DRUGS (6)
  1. AVONEX [Concomitant]
     Active Substance: INTERFERON BETA-1A
  2. SOLU?MEDROL [Concomitant]
     Active Substance: METHYLPREDNISOLONE SODIUM SUCCINATE
     Dosage: FOR 3 DAYS
     Dates: start: 201803
  3. SIPONIMOD [Concomitant]
     Active Substance: SIPONIMOD
  4. SOLU?MEDROL [Concomitant]
     Active Substance: METHYLPREDNISOLONE SODIUM SUCCINATE
  5. OCREVUS [Suspect]
     Active Substance: OCRELIZUMAB
     Indication: RELAPSING-REMITTING MULTIPLE SCLEROSIS
     Dosage: OCREVUS WAS DISCONTINUED ON 14?FEB?2021
     Route: 065
     Dates: start: 20180620
  6. PREDNISONE. [Concomitant]
     Active Substance: PREDNISONE

REACTIONS (3)
  - Lymphocyte count decreased [Unknown]
  - Multiple sclerosis [Not Recovered/Not Resolved]
  - Immunoglobulins decreased [Unknown]
